FAERS Safety Report 5134675-9 (Version None)
Quarter: 2006Q4

REPORT INFORMATION
  Report Type: 
  Country: None (occurrence: None)
  Receive Date: 20061019
  Receipt Date: 20061009
  Transmission Date: 20070319
  Serious: Yes (Hospitalization)
  Sender: FDA-Public Use
  Company Number: 2006123753

PATIENT
  Age: 82 Year
  Sex: Female

DRUGS (12)
  1. NORVASC [Suspect]
     Indication: HYPERTENSION
  2. LASIX [Suspect]
     Indication: DRUG USE FOR UNKNOWN INDICATION
  3. INVESTIGATIONAL DRUG (INVESTIGATIONAL DRUG) [Suspect]
     Indication: ACUTE MYELOID LEUKAEMIA
     Dosage: SEE IMAGE
     Dates: start: 20021104, end: 20021219
  4. INVESTIGATIONAL DRUG (INVESTIGATIONAL DRUG) [Suspect]
     Indication: ACUTE MYELOID LEUKAEMIA
     Dosage: SEE IMAGE
     Dates: start: 20021220
  5. INVESTIGATIONAL DRUG (INVESTIGATIONAL DRUG) [Suspect]
     Indication: ACUTE MYELOID LEUKAEMIA
     Dosage: SEE IMAGE
     Dates: start: 20030305
  6. INVESTIGATIONAL DRUG (INVESTIGATIONAL DRUG) [Suspect]
     Indication: ACUTE MYELOID LEUKAEMIA
     Dosage: SEE IMAGE
     Dates: start: 20030415
  7. INVESTIGATIONAL DRUG (INVESTIGATIONAL DRUG) [Suspect]
     Indication: ACUTE MYELOID LEUKAEMIA
     Dosage: SEE IMAGE
     Dates: start: 20030714
  8. ACYCLOVIR [Concomitant]
  9. VALTREX [Concomitant]
  10. DIFLUCAN [Concomitant]
  11. BLEPH (SULFACETAMIDE SODIUM) [Concomitant]
  12. HYDROXYUREA [Concomitant]

REACTIONS (17)
  - BACK PAIN [None]
  - BALANCE DISORDER [None]
  - BLOOD CREATININE INCREASED [None]
  - COORDINATION ABNORMAL [None]
  - DEHYDRATION [None]
  - DIARRHOEA [None]
  - DIZZINESS [None]
  - FALL [None]
  - FATIGUE [None]
  - HEAD INJURY [None]
  - HEADACHE [None]
  - HYPOTENSION [None]
  - MUSCULAR WEAKNESS [None]
  - MYOCARDIAL ISCHAEMIA [None]
  - NEUTROPENIA [None]
  - PNEUMONIA [None]
  - THROMBOCYTOPENIA [None]
